FAERS Safety Report 6060513-6 (Version None)
Quarter: 2009Q1

REPORT INFORMATION
  Report Type: 
  Country: None (occurrence: None)
  Receive Date: 20090202
  Receipt Date: 20081231
  Transmission Date: 20090719
  Serious: No
  Sender: FDA-Public Use
  Company Number: US-BAYER-200910129NA

PATIENT
  Age: 53 Year
  Sex: Female
  Weight: 62 kg

DRUGS (1)
  1. ULTRAVIST 300 [Suspect]
     Indication: COMPUTERISED TOMOGRAM ABDOMEN
     Dosage: TOTAL DAILY DOSE: 125 ML
     Route: 042
     Dates: start: 20080911, end: 20080911

REACTIONS (3)
  - NASAL CONGESTION [None]
  - THROAT IRRITATION [None]
  - URTICARIA [None]
